FAERS Safety Report 5376921-2 (Version None)
Quarter: 2007Q3

REPORT INFORMATION
  Report Type: 
  Country: None (occurrence: None)
  Receive Date: 20070703
  Receipt Date: 20070625
  Transmission Date: 20080115
  Serious: Yes (Hospitalization)
  Sender: FDA-Public Use
  Company Number: JP-ELI_LILLY_AND_COMPANY-JP200706005585

PATIENT
  Age: 63 Year
  Sex: Male
  Weight: 55.5 kg

DRUGS (3)
  1. GEMCITABINE HCL [Suspect]
     Indication: BILE DUCT CANCER
     Dosage: 1400 MG, OTHER
     Route: 042
     Dates: start: 20061218
  2. TAKEPRON [Concomitant]
     Indication: REFLUX OESOPHAGITIS
     Dosage: 15 MG, DAILY (1/D)
     Route: 048
     Dates: start: 20061202
  3. GASMOTIN [Concomitant]
     Indication: REFLUX OESOPHAGITIS
     Dosage: 15 MG, DAILY (1/D)
     Route: 048
     Dates: start: 20061202

REACTIONS (1)
  - CHOLANGITIS [None]
